FAERS Safety Report 10547821 (Version 1)
Quarter: 2014Q4

REPORT INFORMATION
  Report Type: Spontaneous
  Country: US (occurrence: None)
  Receive Date: 20141024
  Receipt Date: 20141024
  Transmission Date: 20150529
  Serious: No
  Sender: FDA-Public Use
  Company Number: None

PATIENT
  Age: 43 Year
  Sex: Female
  Weight: 83.92 kg

DRUGS (1)
  1. CREST PRO-HEALTH CLINICAL GUM PROTECTION [Suspect]
     Active Substance: STANNOUS FLUORIDE
     Indication: DENTAL CARE
     Dates: start: 20140806, end: 20141023

REACTIONS (6)
  - Oral mucosal exfoliation [None]
  - Stomatitis [None]
  - Mucosal inflammation [None]
  - Noninfective gingivitis [None]
  - Aphthous stomatitis [None]
  - Oral pain [None]

NARRATIVE: CASE EVENT DATE: 20141023
